FAERS Safety Report 14185743 (Version 1)
Quarter: 2017Q4

REPORT INFORMATION
  Report Type: Spontaneous
  Country: GB (occurrence: GB)
  Receive Date: 20171114
  Receipt Date: 20171114
  Transmission Date: 20180321
  Serious: Yes (Hospitalization)
  Sender: FDA-Public Use
  Company Number: GB-ASTRAZENECA-2017SF12954

PATIENT
  Age: 63 Year
  Sex: Female

DRUGS (8)
  1. METFORMIN [Concomitant]
     Active Substance: METFORMIN HYDROCHLORIDE
     Indication: TYPE 2 DIABETES MELLITUS
     Dates: start: 20040424
  2. RANOLAZINE. [Concomitant]
     Active Substance: RANOLAZINE
     Indication: ANGINA PECTORIS
     Dates: start: 20170512
  3. CANDESARTAN CILEXETIL. [Suspect]
     Active Substance: CANDESARTAN CILEXETIL
     Indication: PRODUCT USED FOR UNKNOWN INDICATION
     Route: 048
  4. ASPIRIN. [Concomitant]
     Active Substance: ASPIRIN
     Indication: ANTIPLATELET THERAPY
     Dates: start: 20040403
  5. BISOPROLOL [Suspect]
     Active Substance: BISOPROLOL
     Indication: PROPHYLAXIS
     Route: 065
     Dates: start: 20121229, end: 20170720
  6. INSULIN [Suspect]
     Active Substance: INSULIN NOS
     Indication: TYPE 2 DIABETES MELLITUS
     Route: 065
  7. AMLODIPINE [Concomitant]
     Active Substance: AMLODIPINE BESYLATE
     Indication: HYPERTENSION
     Dates: start: 20170628
  8. GTN [Concomitant]
     Active Substance: NITROGLYCERIN
     Indication: ANGINA PECTORIS
     Dosage: 2.0DF AS REQUIRED
     Dates: start: 20170512

REACTIONS (2)
  - Hyperkalaemia [Recovered/Resolved]
  - Sinus arrest [Not Recovered/Not Resolved]

NARRATIVE: CASE EVENT DATE: 20170702
